FAERS Safety Report 8012283-X (Version None)
Quarter: 2011Q4

REPORT INFORMATION
  Report Type: 
  Country: None (occurrence: None)
  Receive Date: 20111228
  Receipt Date: 20111222
  Transmission Date: 20120403
  Serious: Yes (Hospitalization)
  Sender: FDA-Public Use
  Company Number: FR-SANOFI-AVENTIS-2011SA032179

PATIENT
  Age: 72 Year
  Sex: Female

DRUGS (5)
  1. TAXOTERE [Suspect]
     Indication: BREAST CANCER
     Dates: start: 20110427, end: 20110427
  2. LEVOTHYROXINE SODIUM [Concomitant]
  3. TRASTUZUMAB [Suspect]
     Indication: BREAST CANCER
     Dates: start: 20110427, end: 20110427
  4. CYCLOPHOSPHAMIDE [Suspect]
     Indication: BREAST CANCER
     Dates: start: 20110427, end: 20110427
  5. HYZAAR [Concomitant]

REACTIONS (2)
  - HAEMOLYTIC ANAEMIA [None]
  - IDIOPATHIC THROMBOCYTOPENIC PURPURA [None]
